FAERS Safety Report 17722857 (Version 5)
Quarter: 2020Q2

REPORT INFORMATION
  Report Type: Report from Study
  Country: None (occurrence: CO)
  Receive Date: 20200429
  Receipt Date: 20200610
  Transmission Date: 20200714
  Serious: Yes (Hospitalization, Other)
  Sender: FDA-Public Use
  Company Number: CO-ABBVIE-20K-036-3383992-00

PATIENT
  Age: 59 Year
  Sex: Female
  Weight: 77 kg

DRUGS (1)
  1. IMBRUVICA [Suspect]
     Active Substance: IBRUTINIB
     Indication: MANTLE CELL LYMPHOMA
     Route: 048
     Dates: start: 20200416

REACTIONS (12)
  - Haemorrhoids [Recovering/Resolving]
  - Blood glucose increased [Not Recovered/Not Resolved]
  - Skin burning sensation [Recovered/Resolved with Sequelae]
  - Procedural haemorrhage [Not Recovered/Not Resolved]
  - Platelet count decreased [Not Recovered/Not Resolved]
  - Blood potassium increased [Not Recovered/Not Resolved]
  - Constipation [Recovered/Resolved]
  - Weight decreased [Recovered/Resolved with Sequelae]
  - Stress [Recovered/Resolved with Sequelae]
  - Lumbar puncture [Not Recovered/Not Resolved]
  - Abdominal pain upper [Recovered/Resolved with Sequelae]
  - Product dose omission [Unknown]

NARRATIVE: CASE EVENT DATE: 20200420
